FAERS Safety Report 4508518-8 (Version None)
Quarter: 2004Q4

REPORT INFORMATION
  Report Type: 
  Country: None (occurrence: None)
  Receive Date: 20041123
  Receipt Date: 20040315
  Transmission Date: 20050328
  Serious: No
  Sender: FDA-Public Use
  Company Number: US-GLAXOSMITHKLINE-A0502878A

PATIENT
  Age: 32 Year
  Sex: Female

DRUGS (2)
  1. WELLBUTRIN SR [Suspect]
     Indication: DEPRESSION
     Dosage: 150MG TWICE PER DAY
     Route: 048
     Dates: start: 20040309, end: 20040314
  2. PRILOSEC [Concomitant]

REACTIONS (5)
  - DIZZINESS [None]
  - DRY MOUTH [None]
  - HEADACHE [None]
  - NAUSEA [None]
  - VISION BLURRED [None]
